FAERS Safety Report 20734900 (Version 1)
Quarter: 2022Q2

REPORT INFORMATION
  Report Type: Report from Study
  Country: CO (occurrence: CO)
  Receive Date: 20220421
  Receipt Date: 20220421
  Transmission Date: 20220721
  Serious: Yes (Hospitalization, Other)
  Sender: FDA-Public Use
  Company Number: CO-ABBVIE-22K-036-4365641-00

PATIENT
  Age: 30 Year
  Sex: Female
  Weight: 68 kg

DRUGS (1)
  1. RINVOQ [Suspect]
     Active Substance: UPADACITINIB
     Indication: Rheumatoid arthritis
     Route: 048
     Dates: start: 202202

REACTIONS (3)
  - Pancreatitis [Recovering/Resolving]
  - Cholelithiasis [Recovering/Resolving]
  - Biliary dilatation [Recovering/Resolving]

NARRATIVE: CASE EVENT DATE: 20220410
